FAERS Safety Report 17353607 (Version 1)
Quarter: 2020Q1

REPORT INFORMATION
  Report Type: Spontaneous
  Country: US (occurrence: US)
  Receive Date: 20200131
  Receipt Date: 20200131
  Transmission Date: 20200409
  Serious: No
  Sender: FDA-Public Use
  Company Number: US-GLAXOSMITHKLINE-US2020AMR015538

PATIENT

DRUGS (3)
  1. REQUIP XL [Suspect]
     Active Substance: ROPINIROLE HYDROCHLORIDE
     Indication: RESTLESS LEGS SYNDROME
     Dosage: 12 MG
     Route: 065
  2. REQUIP [Suspect]
     Active Substance: ROPINIROLE HYDROCHLORIDE
     Indication: RESTLESS LEGS SYNDROME
     Dosage: 2 MG, Z
     Route: 065
  3. REQUIP [Suspect]
     Active Substance: ROPINIROLE HYDROCHLORIDE
     Dosage: 3 MG, QID
     Route: 065

REACTIONS (8)
  - Drug ineffective [Unknown]
  - Product use in unapproved indication [Unknown]
  - Drug effective for unapproved indication [Unknown]
  - Dyskinesia [Unknown]
  - Muscle twitching [Unknown]
  - Pain in extremity [Unknown]
  - Off label use [Unknown]
  - Overdose [Unknown]
